FAERS Safety Report 4613683-8 (Version None)
Quarter: 2005Q1

REPORT INFORMATION
  Report Type: 
  Country: None (occurrence: None)
  Receive Date: 20050315
  Receipt Date: 20050222
  Transmission Date: 20050727
  Serious: Yes (Hospitalization)
  Sender: FDA-Public Use
  Company Number: 10452

PATIENT
  Age: 3 Year
  Sex: Male

DRUGS (2)
  1. METHYLPREDNISOLONE [Suspect]
     Indication: ACUTE LYMPHOCYTIC LEUKAEMIA
     Dosage: 50 MG/M2, IV
     Route: 042
     Dates: start: 20020101, end: 20020101
  2. METHOTREXATE [Suspect]
     Indication: ACUTE LYMPHOCYTIC LEUKAEMIA
     Dosage: 13 MG, IT
     Dates: start: 20020101, end: 20020101

REACTIONS (4)
  - CEREBRAL THROMBOSIS [None]
  - IRRITABILITY [None]
  - OPTIC DISC DISORDER [None]
  - VOMITING [None]
